FAERS Safety Report 9229690 (Version 2)
Quarter: 2013Q2

REPORT INFORMATION
  Report Type: Spontaneous
  Country: US (occurrence: US)
  Receive Date: 20130415
  Receipt Date: 20130502
  Transmission Date: 20140414
  Serious: Yes (Hospitalization, Other)
  Sender: FDA-Public Use
  Company Number: US-PFIZER INC-2013112976

PATIENT
  Sex: Female

DRUGS (1)
  1. PRISTIQ [Suspect]
     Dosage: UNK

REACTIONS (4)
  - Cerebrovascular accident [Unknown]
  - Neuropathic arthropathy [Unknown]
  - Blindness [Unknown]
  - Localised infection [Unknown]
